FAERS Safety Report 24392434 (Version 1)
Quarter: 2024Q4

REPORT INFORMATION
  Report Type: Spontaneous
  Country: US (occurrence: US)
  Receive Date: 20241003
  Receipt Date: 20241003
  Transmission Date: 20250115
  Serious: Yes (Other)
  Sender: BIOCON
  Company Number: US-BIOCON BIOLOGICS LIMITED-BBL2024007206

PATIENT

DRUGS (1)
  1. INSULIN HUMAN [Suspect]
     Active Substance: INSULIN HUMAN
     Indication: Insulin autoimmune syndrome
     Dosage: 0.1 UNITS/KG/HR PER DKA PROTOCOL
     Route: 065

REACTIONS (3)
  - Insulin resistance [Unknown]
  - Antibody test positive [Unknown]
  - Drug ineffective [Unknown]
